FAERS Safety Report 6805579-8 (Version None)
Quarter: 2010Q2

REPORT INFORMATION
  Report Type: 
  Country: None (occurrence: None)
  Receive Date: 20100628
  Receipt Date: 20080111
  Transmission Date: 20101027
  Serious: No
  Sender: FDA-Public Use
  Company Number: US-PFIZER INC-2007102509

PATIENT
  Sex: Female
  Weight: 61.818 kg

DRUGS (9)
  1. XALATAN [Suspect]
     Indication: GLAUCOMA
     Route: 031
     Dates: start: 20071101, end: 20071201
  2. XALATAN [Suspect]
     Indication: OCULAR HYPERTENSION
  3. OMEPRAZOLE [Concomitant]
     Indication: GASTRIC DISORDER
  4. FEXOFENADINE [Concomitant]
     Indication: HYPERSENSITIVITY
  5. SERTRALINE HCL [Concomitant]
     Indication: DEPRESSION
  6. VITAMINS [Concomitant]
  7. CALCIUM CARBONATE [Concomitant]
  8. LIPITOR [Concomitant]
  9. SEROQUEL [Concomitant]

REACTIONS (2)
  - EYE IRRITATION [None]
  - OCULAR HYPERAEMIA [None]
